FAERS Safety Report 5704801-9 (Version None)
Quarter: 2008Q2

REPORT INFORMATION
  Report Type: 
  Country: None (occurrence: None)
  Receive Date: 20080414
  Receipt Date: 20080402
  Transmission Date: 20081010
  Serious: Yes (Other)
  Sender: FDA-Public Use
  Company Number: AU-PFIZER INC-2008017980

PATIENT
  Sex: Male
  Weight: 94.2 kg

DRUGS (16)
  1. CHAMPIX [Suspect]
     Dates: start: 20080202, end: 20080212
  2. ALL OTHER THERAPEUTIC PRODUCTS [Concomitant]
  3. AMARYL [Concomitant]
  4. ASMOL [Concomitant]
  5. ACETYLSALICYLIC ACID SRT [Concomitant]
  6. BETALOC [Concomitant]
  7. FAMVIR [Concomitant]
  8. FUROSEMIDE [Concomitant]
  9. SIMVASTATIN [Concomitant]
  10. MURELAX [Concomitant]
     Dosage: FREQ:AT NIGHT WHEN REQUIRED
  11. NITROLINGUAL PUMPSPRAY [Concomitant]
  12. PRESSIN [Concomitant]
  13. ISOPHANE INSULIN [Concomitant]
     Route: 051
  14. SIGMACORT [Concomitant]
     Dosage: TEXT:1% APPLIED SPARINGLY
  15. SPIRIVA [Concomitant]
  16. THIAMINE HCL [Concomitant]

REACTIONS (20)
  - ABNORMAL BEHAVIOUR [None]
  - ANOREXIA [None]
  - APATHY [None]
  - BALANCE DISORDER [None]
  - CARDIOVASCULAR DISORDER [None]
  - DEPRESSION [None]
  - DIABETES MELLITUS INADEQUATE CONTROL [None]
  - DYSGEUSIA [None]
  - FATIGUE [None]
  - FEELING HOT [None]
  - HEADACHE [None]
  - HYPERACUSIS [None]
  - HYPERHIDROSIS [None]
  - HYPERSOMNIA [None]
  - HYPERTENSION [None]
  - MALAISE [None]
  - NAUSEA [None]
  - PALLOR [None]
  - THIRST [None]
  - VISION BLURRED [None]
